FAERS Safety Report 14256249 (Version 1)
Quarter: 2017Q4

REPORT INFORMATION
  Report Type: Spontaneous
  Country: US (occurrence: US)
  Receive Date: 20171206
  Receipt Date: 20171206
  Transmission Date: 20180321
  Serious: Yes (Other)
  Sender: FDA-Public Use
  Company Number: US-BAUSCH-BL-2017-032698

PATIENT
  Age: 80 Year
  Sex: Male

DRUGS (1)
  1. TETRACAINE HYDROCHLORIDE OPHTHALMIC SOLUTION USP 0.5% [Suspect]
     Active Substance: TETRACAINE HYDROCHLORIDE
     Indication: PREOPERATIVE CARE
     Dosage: ONE DROP IN EYE BEFORE THE SURGERY AND 3 DROPS AFTER DILATING THE EYE
     Route: 047
     Dates: start: 20170818, end: 20170818

REACTIONS (2)
  - Eye infection [Unknown]
  - Visual impairment [Unknown]

NARRATIVE: CASE EVENT DATE: 2017
